FAERS Safety Report 6287152-6 (Version None)
Quarter: 2009Q3

REPORT INFORMATION
  Report Type: 
  Country: None (occurrence: None)
  Receive Date: 20090728
  Receipt Date: 20090716
  Transmission Date: 20100115
  Serious: Yes (Death, Other)
  Sender: FDA-Public Use
  Company Number: US-ELI_LILLY_AND_COMPANY-US200907003783

PATIENT
  Sex: Male

DRUGS (3)
  1. ZYPREXA [Suspect]
     Indication: PATIENT RESTRAINT
  2. DEPAKOTE [Concomitant]
     Indication: PATIENT RESTRAINT
  3. SEROQUEL [Concomitant]
     Indication: PATIENT RESTRAINT

REACTIONS (9)
  - DEATH [None]
  - DEHYDRATION [None]
  - INFECTED SKIN ULCER [None]
  - MOBILITY DECREASED [None]
  - OFF LABEL USE [None]
  - OVERDOSE [None]
  - PNEUMONIA [None]
  - SEPSIS [None]
  - WEIGHT DECREASED [None]
